FAERS Safety Report 22211545 (Version 1)
Quarter: 2023Q2

REPORT INFORMATION
  Report Type: Spontaneous
  Country: TR (occurrence: TR)
  Receive Date: 20230414
  Receipt Date: 20230414
  Transmission Date: 20230722
  Serious: Yes (Hospitalization, Other)
  Sender: FDA-Public Use
  Company Number: TR-AMGEN-TURSP2023062804

PATIENT
  Age: 18 Year
  Sex: Male

DRUGS (7)
  1. FILGRASTIM [Suspect]
     Active Substance: FILGRASTIM
     Indication: Prophylaxis
     Dosage: UNK
     Route: 065
  2. IFOSFAMIDE [Concomitant]
     Active Substance: IFOSFAMIDE
     Indication: Synovial sarcoma
  3. MESNA [Concomitant]
     Active Substance: MESNA
     Indication: Synovial sarcoma
  4. ADRIAMYCIN [Concomitant]
     Active Substance: DOXORUBICIN HYDROCHLORIDE
     Indication: Synovial sarcoma
  5. GEMCITABINE [Concomitant]
     Active Substance: GEMCITABINE
     Indication: Synovial sarcoma
  6. DOCETAXEL [Concomitant]
     Active Substance: DOCETAXEL
     Indication: Synovial sarcoma
  7. PAZOPANIB [Concomitant]
     Active Substance: PAZOPANIB
     Indication: Synovial sarcoma

REACTIONS (3)
  - Pneumothorax [Unknown]
  - Bicytopenia [Unknown]
  - Toxicity to various agents [Unknown]
